FAERS Safety Report 4676685-1 (Version None)
Quarter: 2005Q2

REPORT INFORMATION
  Report Type: 
  Country: None (occurrence: None)
  Receive Date: 20050527
  Receipt Date: 20050510
  Transmission Date: 20051028
  Serious: Yes (Hospitalization)
  Sender: FDA-Public Use
  Company Number: 2005UW07209

PATIENT
  Age: 64 Year
  Sex: Male
  Weight: 105 kg

DRUGS (16)
  1. ZD1839 [Suspect]
     Indication: COLORECTAL CANCER
     Route: 048
     Dates: start: 20040412, end: 20050505
  2. ZD1839 [Suspect]
     Route: 048
     Dates: start: 20050517
  3. LEUCOVORIN CALCIUM [Suspect]
     Indication: COLORECTAL CANCER
     Dosage: 200MG/M2 IV DAY ONE OF EACH CYCLE
     Route: 042
     Dates: start: 20040412, end: 20050505
  4. FLUOROURACIL [Suspect]
     Indication: COLORECTAL CANCER
     Dosage: 400 MG/M2, IV, DAY 1 BOLUS
     Route: 042
     Dates: start: 20040412, end: 20050505
  5. FLUOROURACIL [Suspect]
     Dosage: 400 MG/M2, IV, DAY 1-DAY 3 INFUSIONAL
     Route: 042
     Dates: start: 20040412, end: 20050505
  6. AMBIEN [Concomitant]
     Dates: start: 20040330
  7. ATENOLOL [Concomitant]
     Dates: start: 20040330
  8. ATIVAN [Concomitant]
     Dates: start: 20040412
  9. CLEOCIN T [Concomitant]
     Dates: start: 20040426
  10. DYAZIDE [Concomitant]
     Dates: start: 20040330
  11. FOLIC ACID [Concomitant]
     Dates: start: 20050208
  12. FRAGMIN [Concomitant]
     Indication: PULMONARY EMBOLISM
     Dates: start: 20050322
  13. LISINOPRIL [Concomitant]
     Dates: start: 20040330
  14. MULTI-VITAMIN [Concomitant]
     Dates: start: 20050208
  15. PEPCID AC [Concomitant]
     Dates: start: 20040330
  16. ZOFRAN [Concomitant]
     Dates: start: 20040412

REACTIONS (11)
  - BLOOD PRESSURE DECREASED [None]
  - DIZZINESS [None]
  - FAECES DISCOLOURED [None]
  - GASTRITIS [None]
  - GASTROINTESTINAL HAEMORRHAGE [None]
  - GASTROINTESTINAL MUCOSAL DISORDER [None]
  - HAEMATOCHEZIA [None]
  - NAUSEA [None]
  - REFLUX OESOPHAGITIS [None]
  - TACHYCARDIA [None]
  - VOMITING [None]
